FAERS Safety Report 7961890-9 (Version None)
Quarter: 2011Q4

REPORT INFORMATION
  Report Type: 
  Country: None (occurrence: None)
  Receive Date: 20111202
  Receipt Date: 20111202
  Transmission Date: 20120403
  Serious: Yes (Other)
  Sender: FDA-Public Use
  Company Number: None

PATIENT
  Sex: Female
  Weight: 82.5547 kg

DRUGS (1)
  1. LISINOPRIL [Suspect]
     Indication: BLOOD PRESSURE ABNORMAL
     Dosage: 1 TABLET DAILY
     Dates: start: 20111110

REACTIONS (4)
  - DIARRHOEA [None]
  - LIP SWELLING [None]
  - ABDOMINAL PAIN UPPER [None]
  - SWELLING FACE [None]
